FAERS Safety Report 8900170 (Version 1)
Quarter: 2012Q4

REPORT INFORMATION
  Report Type: 
  Country: US (occurrence: US)
  Receive Date: 20121108
  Receipt Date: 20121108
  Transmission Date: 20130627
  Serious: No
  Sender: FDA-Public Use
  Company Number: US-AMGEN-USASP2012037101

PATIENT
  Age: 54 Year
  Sex: Female

DRUGS (2)
  1. ENBREL [Suspect]
     Indication: RHEUMATOID ARTHRITIS
     Dosage: 50 mg, qwk
     Dates: start: 20120312
  2. PREDNISONE [Concomitant]

REACTIONS (7)
  - Drug effect incomplete [Recovered/Resolved]
  - Injection site mass [Recovered/Resolved]
  - Pruritus [Recovered/Resolved]
  - Injection site reaction [Recovered/Resolved]
  - Injection site erythema [Recovered/Resolved]
  - Injection site induration [Recovered/Resolved]
  - Injection site swelling [Recovered/Resolved]
